FAERS Safety Report 7814048-8 (Version None)
Quarter: 2011Q4

REPORT INFORMATION
  Report Type: 
  Country: None (occurrence: None)
  Receive Date: 20111014
  Receipt Date: 20111012
  Transmission Date: 20120403
  Serious: Yes (Death)
  Sender: FDA-Public Use
  Company Number: JP-EISAI INC-E2020-09587-SPO-JP

PATIENT
  Age: 77 Year
  Sex: Female

DRUGS (3)
  1. ARICEPT [Suspect]
     Route: 048
     Dates: start: 20110101
  2. GRAMALIL [Suspect]
     Dosage: UNKNOWN
     Route: 048
  3. LANSOPRAZOLE [Concomitant]
     Route: 048

REACTIONS (1)
  - INTESTINAL ISCHAEMIA [None]
